FAERS Safety Report 14152132 (Version 1)
Quarter: 2017Q4

REPORT INFORMATION
  Report Type: Spontaneous
  Country: US (occurrence: US)
  Receive Date: 20171102
  Receipt Date: 20171102
  Transmission Date: 20180321
  Serious: Yes (Other)
  Sender: FDA-Public Use
  Company Number: US-ROCHE-2012597

PATIENT
  Sex: Female
  Weight: 97.16 kg

DRUGS (18)
  1. ENBREL [Suspect]
     Active Substance: ETANERCEPT
     Indication: RHEUMATOID ARTHRITIS
     Dosage: UNK ONE SHOT
     Route: 065
     Dates: start: 2013, end: 2014
  2. XELJANZ [Suspect]
     Active Substance: TOFACITINIB CITRATE
     Route: 048
     Dates: start: 2016
  3. PREDNISONE. [Suspect]
     Active Substance: PREDNISONE
     Indication: PRODUCT USED FOR UNKNOWN INDICATION
     Route: 065
     Dates: start: 201606
  4. FOLIC ACID. [Concomitant]
     Active Substance: FOLIC ACID
  5. CORTISONE [Concomitant]
     Active Substance: CORTISONE\HYDROCORTISONE
  6. METHOTREXATE. [Suspect]
     Active Substance: METHOTREXATE
     Indication: RHEUMATOID ARTHRITIS
     Route: 048
  7. XANAX [Concomitant]
     Active Substance: ALPRAZOLAM
  8. OXYCONTIN [Concomitant]
     Active Substance: OXYCODONE HYDROCHLORIDE
  9. ACTEMRA [Suspect]
     Active Substance: TOCILIZUMAB
     Indication: PRODUCT USED FOR UNKNOWN INDICATION
     Dosage: UNK ONE SHOT
     Route: 065
     Dates: start: 2014, end: 2015
  10. XELJANZ [Suspect]
     Active Substance: TOFACITINIB CITRATE
     Indication: RHEUMATOID ARTHRITIS
     Route: 048
     Dates: start: 201507, end: 201606
  11. ENBREL [Suspect]
     Active Substance: ETANERCEPT
     Route: 065
     Dates: start: 2015
  12. PREDNISONE. [Suspect]
     Active Substance: PREDNISONE
     Dosage: UNKNOWN
     Route: 065
  13. DILAUDID [Concomitant]
     Active Substance: HYDROMORPHONE HYDROCHLORIDE
  14. PREDNISONE. [Suspect]
     Active Substance: PREDNISONE
     Dosage: TWO PILLS FOR FOUR DAYS,UNKNOWN
     Route: 065
  15. DESONIDE. [Concomitant]
     Active Substance: DESONIDE
  16. CITALOPRAM [Concomitant]
     Active Substance: CITALOPRAM HYDROBROMIDE
  17. XELJANZ [Suspect]
     Active Substance: TOFACITINIB CITRATE
     Dosage: 10 MG (TWO 5 MG), ONGOING
     Route: 048
     Dates: start: 201608
  18. METHOTREXATE. [Suspect]
     Active Substance: METHOTREXATE
     Dosage: 17.5 MG, (SEVEN 2.5),ONGOING
     Route: 048

REACTIONS (14)
  - Skin exfoliation [Recovered/Resolved]
  - Pain [Not Recovered/Not Resolved]
  - Neuropathy peripheral [Not Recovered/Not Resolved]
  - Decreased immune responsiveness [Unknown]
  - Blister [Recovering/Resolving]
  - Peripheral swelling [Not Recovered/Not Resolved]
  - Herpes zoster [Recovered/Resolved]
  - Gait disturbance [Recovering/Resolving]
  - Mental disorder [Not Recovered/Not Resolved]
  - Tinea pedis [Unknown]
  - Depression [Unknown]
  - Headache [Not Recovered/Not Resolved]
  - Eczema [Unknown]
  - Poor quality sleep [Not Recovered/Not Resolved]
